FAERS Safety Report 18373461 (Version 1)
Quarter: 2020Q4

REPORT INFORMATION
  Report Type: Report from Study
  Country: FR (occurrence: FR)
  Receive Date: 20201012
  Receipt Date: 20201012
  Transmission Date: 20210114
  Serious: Yes (Hospitalization, Other)
  Sender: FDA-Public Use
  Company Number: NVSC2020FR235704

PATIENT
  Age: 78 Year
  Sex: Female

DRUGS (2)
  1. TAFINLAR [Suspect]
     Active Substance: DABRAFENIB MESYLATE
     Indication: MALIGNANT MELANOMA
     Dosage: 150 MG, BID
     Route: 048
     Dates: start: 20170811, end: 20180329
  2. TRAMETINIB [Suspect]
     Active Substance: TRAMETINIB
     Indication: MALIGNANT MELANOMA
     Dosage: 2 MG, QD
     Route: 065
     Dates: start: 20170811, end: 20180329

REACTIONS (6)
  - Depression [Recovered/Resolved]
  - Drug monitoring procedure incorrectly performed [Unknown]
  - Malignant melanoma [Unknown]
  - Hypothyroidism [Recovered/Resolved]
  - Incorrect product administration duration [Unknown]
  - Disease recurrence [Unknown]

NARRATIVE: CASE EVENT DATE: 20200315
